FAERS Safety Report 23734212 (Version 1)
Quarter: 2024Q2

REPORT INFORMATION
  Report Type: Spontaneous
  Country: CN (occurrence: CN)
  Receive Date: 20240412
  Receipt Date: 20240412
  Transmission Date: 20240716
  Serious: Yes (Hospitalization)
  Sender: FDA-Public Use
  Company Number: CN-BEIGENE-BGN-2024-005359

PATIENT

DRUGS (1)
  1. TISLELIZUMAB [Suspect]
     Active Substance: TISLELIZUMAB
     Indication: Hepatic cancer
     Dosage: 200 MILLIGRAM, Q3WK
     Route: 041
     Dates: start: 20240301

REACTIONS (5)
  - Immune-mediated dermatitis [Recovering/Resolving]
  - Mouth ulceration [Unknown]
  - Nutritional condition abnormal [Unknown]
  - Poor quality sleep [Unknown]
  - Hypertension [Unknown]

NARRATIVE: CASE EVENT DATE: 20240322
